FAERS Safety Report 7852878 (Version 2)
Quarter: 2013Q4

REPORT INFORMATION
  Report Type: Report from Study
  Country: JP (occurrence: JP)
  Receive Date: 20110311
  Receipt Date: 20131224
  Transmission Date: 20140711
  Serious: Yes (Hospitalization, Other)
  Sender: FDA-Public Use
  Company Number: JP-CELGENEUS-087-21880-10080456

PATIENT
  Age: 68 Year
  Sex: Male

DRUGS (69)
  1. REVLIMID [Suspect]
     Indication: PLASMA CELL MYELOMA
     Dosage: 25 MILLIGRAM
     Route: 048
     Dates: start: 20100802, end: 20100804
  2. REVLIMID [Suspect]
     Dosage: 5 MILLIGRAM
     Route: 048
     Dates: start: 20100817, end: 20100819
  3. REVLIMID [Suspect]
     Dosage: 10 MILLIGRAM
     Route: 048
     Dates: start: 20100820, end: 20100823
  4. REVLIMID [Suspect]
     Dosage: 15 MILLIGRAM
     Route: 048
     Dates: start: 20100824, end: 20100902
  5. REVLIMID [Suspect]
     Dosage: 20 MILLIGRAM
     Route: 048
     Dates: start: 20100903, end: 20100913
  6. REVLIMID [Suspect]
     Dosage: 10 MILLIGRAM
     Route: 048
     Dates: start: 20101008, end: 20101014
  7. REVLIMID [Suspect]
     Dosage: 15 MILLIGRAM
     Route: 048
     Dates: start: 20101015, end: 20101028
  8. REVLIMID [Suspect]
     Dosage: 15 MILLIGRAM
     Route: 048
     Dates: start: 20101110, end: 20101130
  9. REVLIMID [Suspect]
     Dosage: 10 MILLIGRAM
     Route: 048
     Dates: start: 20101208, end: 20101228
  10. REVLIMID [Suspect]
     Dosage: 5 MILLIGRAM
     Route: 048
     Dates: start: 20110209, end: 20110215
  11. REVLIMID [Suspect]
     Dosage: 5 MILLIGRAM
     Route: 048
     Dates: start: 20110225, end: 20110310
  12. REVLIMID [Suspect]
     Dosage: 10 MILLIGRAM
     Route: 048
     Dates: start: 20110408, end: 20110421
  13. REVLIMID [Suspect]
     Dosage: 10 MILLIGRAM
     Route: 048
     Dates: start: 20110916, end: 20111006
  14. REVLIMID [Suspect]
     Dosage: 10 MILLIGRAM
     Route: 048
     Dates: start: 20111021, end: 20111110
  15. REVLIMID [Suspect]
     Dosage: 10 MILLIGRAM
     Route: 048
     Dates: start: 20111126, end: 20111129
  16. REVLIMID [Suspect]
     Dosage: 10 MILLIGRAM
     Route: 048
     Dates: start: 20120113, end: 20120119
  17. REVLIMID [Suspect]
     Dosage: 15 MILLIGRAM
     Route: 048
     Dates: start: 20120120, end: 20120126
  18. REVLIMID [Suspect]
     Dosage: 15 MILLIGRAM
     Route: 048
     Dates: start: 20120127, end: 20120202
  19. REVLIMID [Suspect]
     Dosage: 10 MILLIGRAM
     Route: 048
     Dates: start: 20120203, end: 20120209
  20. REVLIMID [Suspect]
     Dosage: 10 MILLIGRAM
     Route: 048
     Dates: start: 20120224, end: 20120301
  21. REVLIMID [Suspect]
     Dosage: 10 MILLIGRAM
     Route: 048
     Dates: start: 20120302, end: 20120307
  22. REVLIMID [Suspect]
     Dosage: 10 MILLIGRAM
     Route: 048
     Dates: start: 20120309, end: 20120315
  23. REVLIMID [Suspect]
     Dosage: 10 MILLIGRAM
     Route: 048
     Dates: start: 20120501, end: 20120507
  24. REVLIMID [Suspect]
     Dosage: 10 MILLIGRAM
     Route: 048
     Dates: start: 20120508, end: 20120514
  25. REVLIMID [Suspect]
     Dosage: 10 MILLIGRAM
     Route: 048
     Dates: start: 20120515, end: 20120521
  26. REVLIMID [Suspect]
     Dosage: 10 MILLIGRAM
     Route: 048
     Dates: start: 20120608, end: 20120614
  27. LENADEX [Suspect]
     Indication: PLASMA CELL MYELOMA
     Dosage: 40 MILLIGRAM
     Route: 048
     Dates: start: 20100802, end: 20100802
  28. LENADEX [Suspect]
     Route: 048
     Dates: start: 20100818, end: 20100914
  29. LENADEX [Suspect]
     Route: 048
     Dates: start: 20101008, end: 20101022
  30. LENADEX [Suspect]
     Dosage: 40 MILLIGRAM
     Route: 048
     Dates: start: 20101110, end: 20101110
  31. LENADEX [Suspect]
     Dosage: 20 MILLIGRAM
     Route: 048
     Dates: start: 20101117, end: 20101118
  32. LENADEX [Suspect]
     Dosage: 12 MILLIGRAM
     Route: 048
     Dates: start: 20101124, end: 20101127
  33. LENADEX [Suspect]
     Dosage: 12 MILLIGRAM
     Route: 048
     Dates: start: 20101208, end: 20101211
  34. LENADEX [Suspect]
     Dosage: 8 MILLIGRAM
     Route: 048
     Dates: start: 20101216, end: 20101217
  35. LENADEX [Suspect]
     Dosage: 12 MILLIGRAM
     Route: 048
     Dates: start: 20101222, end: 20101225
  36. LENADEX [Suspect]
     Dosage: 8 MILLIGRAM
     Route: 048
     Dates: start: 20110209, end: 20110215
  37. LENADEX [Suspect]
     Dosage: 8 MILLIGRAM
     Route: 048
     Dates: start: 20110225, end: 20110228
  38. LENADEX [Suspect]
     Dosage: 28 MILLIGRAM
     Route: 048
     Dates: start: 20110304, end: 20110304
  39. LENADEX [Suspect]
     Dosage: 16 MILLIGRAM
     Route: 048
     Dates: start: 20110330, end: 20110331
  40. LENADEX [Suspect]
     Dosage: 16 MILLIGRAM
     Route: 048
     Dates: start: 20110408, end: 20110409
  41. LENADEX [Suspect]
     Dosage: 16 MILLIGRAM
     Route: 048
     Dates: start: 20110415, end: 20110416
  42. LENADEX [Suspect]
     Dosage: 12 MILLIGRAM
     Route: 048
     Dates: start: 20110916, end: 20110919
  43. LENADEX [Suspect]
     Dosage: 12 MILLIGRAM
     Route: 048
     Dates: start: 20110922, end: 20110928
  44. LENADEX [Suspect]
     Dosage: 12 MILLIGRAM
     Route: 048
     Dates: start: 20110930, end: 20111006
  45. LENADEX [Suspect]
     Dosage: 12 MILLIGRAM
     Route: 048
     Dates: start: 20111021, end: 20111028
  46. LENADEX [Suspect]
     Dosage: 12 MILLIGRAM
     Route: 048
     Dates: start: 20111104, end: 20111107
  47. LENADEX [Suspect]
     Dosage: 20 MILLIGRAM
     Route: 048
     Dates: start: 20111126, end: 20111127
  48. LENADEX [Suspect]
     Dosage: 20 MILLIGRAM
     Route: 048
     Dates: start: 20120113, end: 20120114
  49. LENADEX [Suspect]
     Dosage: 20 MILLIGRAM
     Route: 048
     Dates: start: 20120120, end: 20120121
  50. LENADEX [Suspect]
     Dosage: 20 MILLIGRAM
     Route: 048
     Dates: start: 20120127, end: 20120128
  51. LENADEX [Suspect]
     Dosage: 20 MILLIGRAM
     Route: 048
     Dates: start: 20120203, end: 20120203
  52. LENADEX [Suspect]
     Dosage: 8 MILLIGRAM
     Route: 048
     Dates: start: 20120507, end: 20120508
  53. LENADEX [Suspect]
     Dosage: 8 MILLIGRAM
     Route: 048
     Dates: start: 20120515, end: 20120516
  54. LENADEX [Suspect]
     Dosage: 8 MILLIGRAM
     Route: 048
     Dates: start: 20120608, end: 20120609
  55. UNKNOWNDRUG [Suspect]
     Indication: PROPHYLAXIS
     Dosage: 2 MILLIGRAM
     Route: 048
     Dates: start: 20120113, end: 20120604
  56. ITRIZOLE [Concomitant]
     Indication: INFECTION PROPHYLAXIS
     Dosage: 100 MILLIGRAM
     Route: 048
     Dates: start: 20100802, end: 20100804
  57. WARFARIN [Concomitant]
     Indication: THROMBOSIS PROPHYLAXIS
     Dosage: 1 MILLIGRAM
     Route: 048
     Dates: start: 20100802, end: 20100804
  58. WARFARIN [Concomitant]
     Dosage: 1 MILLIGRAM
     Route: 048
     Dates: start: 20101015
  59. WARFARIN [Concomitant]
     Dosage: 2 MILLIGRAM
     Route: 048
     Dates: start: 20101110
  60. WARFARIN [Concomitant]
     Dosage: 1 MILLIGRAM
     Route: 048
     Dates: start: 20110916, end: 20120323
  61. BACTRAMIN [Concomitant]
     Indication: PROPHYLAXIS
     Dosage: 1 GRAM
     Route: 048
     Dates: start: 20100802, end: 20100804
  62. ASTRIC DS [Concomitant]
     Indication: PROPHYLAXIS
     Dosage: .5 GRAM
     Route: 048
     Dates: start: 20100802, end: 20100804
  63. VELCADE [Concomitant]
     Indication: PLASMA CELL MYELOMA
     Route: 041
     Dates: start: 20111130, end: 20111219
  64. ZOMETA [Concomitant]
     Indication: PLASMA CELL MYELOMA
     Dosage: 4 MILLIGRAM
     Route: 041
     Dates: start: 20101008
  65. ZOMETA [Concomitant]
     Dosage: 4 MILLIGRAM
     Route: 041
     Dates: start: 20111021, end: 20120528
  66. ZOVIRAX [Concomitant]
     Indication: PROPHYLAXIS
     Dosage: 200 MILLIGRAM
     Route: 048
     Dates: start: 20101015
  67. ZOVIRAX [Concomitant]
     Dosage: 200 MILLIGRAM
     Route: 048
     Dates: start: 20111130, end: 20111222
  68. ALCENOL [Concomitant]
     Indication: PLASMA CELL MYELOMA
     Dosage: 25 MILLIGRAM
     Route: 048
     Dates: start: 20101110
  69. ALCENOL [Concomitant]
     Dosage: 75 MILLIGRAM
     Route: 048
     Dates: start: 20111014, end: 20120604

REACTIONS (7)
  - Aspartate aminotransferase increased [Recovered/Resolved]
  - Alanine aminotransferase increased [Recovered/Resolved]
  - Haemoglobin decreased [Not Recovered/Not Resolved]
  - Pyrexia [Recovered/Resolved]
  - Herpes zoster [Recovered/Resolved]
  - Neutrophil count decreased [Recovered/Resolved]
  - C-reactive protein increased [Recovering/Resolving]
